FAERS Safety Report 18891014 (Version 1)
Quarter: 2021Q1

REPORT INFORMATION
  Report Type: Spontaneous
  Country: US (occurrence: US)
  Receive Date: 20210215
  Receipt Date: 20210215
  Transmission Date: 20210420
  Serious: No
  Sender: FDA-Public Use
  Company Number: US-ADVANZ PHARMA-202101000321

PATIENT

DRUGS (1)
  1. HYDROXYCHLOROQUINE [Suspect]
     Active Substance: HYDROXYCHLOROQUINE
     Indication: COVID-19
     Dosage: UNK

REACTIONS (4)
  - Anosmia [Unknown]
  - Head discomfort [Unknown]
  - Ageusia [Unknown]
  - Product use in unapproved indication [Unknown]
